FAERS Safety Report 20620183 (Version 1)
Quarter: 2022Q1

REPORT INFORMATION
  Report Type: Spontaneous
  Country: US (occurrence: None)
  Receive Date: 20220321
  Receipt Date: 20220321
  Transmission Date: 20220423
  Serious: Yes (Hospitalization)
  Sender: FDA-Public Use
  Company Number: None

PATIENT
  Sex: Female

DRUGS (2)
  1. XIFAXAN [Suspect]
     Active Substance: RIFAXIMIN
     Indication: Endocrine pancreatic disorder
     Dosage: FREQUENCY : TWICE A DAY;?
     Route: 048
     Dates: start: 20180813
  2. XIFAXAN [Suspect]
     Active Substance: RIFAXIMIN
     Indication: Pancreatic carcinoma

REACTIONS (2)
  - Hospitalisation [None]
  - Therapy interrupted [None]
